FAERS Safety Report 8571836-0 (Version None)
Quarter: 2012Q3

REPORT INFORMATION
  Report Type: 
  Country: None (occurrence: None)
  Receive Date: 20120806
  Receipt Date: 20120724
  Transmission Date: 20120928
  Serious: Yes (Death)
  Sender: FDA-Public Use
  Company Number: JP-BAYER-2012-074118

PATIENT
  Age: 77 Year
  Sex: Female

DRUGS (2)
  1. NEXAVAR [Suspect]
     Dosage: DAILY DOSE 600 MG
  2. NEXAVAR [Suspect]
     Indication: RENAL CELL CARCINOMA
     Dosage: DAILY DOSE 400 MG

REACTIONS (5)
  - MALAISE [None]
  - PNEUMATOSIS INTESTINALIS [None]
  - BLOOD CREATININE INCREASED [None]
  - PORTAL VENOUS GAS [None]
  - THROMBOCYTOPENIA [None]
